FAERS Safety Report 4760225-2 (Version None)
Quarter: 2005Q3

REPORT INFORMATION
  Report Type: 
  Country: None (occurrence: None)
  Receive Date: 20050902
  Receipt Date: 20050823
  Transmission Date: 20060218
  Serious: Yes (Other)
  Sender: FDA-Public Use
  Company Number: BR-JNJFOC-20050806670

PATIENT
  Age: 40 Year
  Sex: Female

DRUGS (1)
  1. TYLEX [Suspect]
     Indication: DRUG USE FOR UNKNOWN INDICATION
     Route: 048

REACTIONS (2)
  - INTENTIONAL MISUSE [None]
  - SUICIDE ATTEMPT [None]
